FAERS Safety Report 17508850 (Version 2)
Quarter: 2020Q1

REPORT INFORMATION
  Report Type: Spontaneous
  Country: DE (occurrence: DE)
  Receive Date: 20200306
  Receipt Date: 20200311
  Transmission Date: 20200409
  Serious: Yes (Hospitalization, Other)
  Sender: FDA-Public Use
  Company Number: DE-PFIZER INC-2020095281

PATIENT

DRUGS (1)
  1. CYTOTEC [Suspect]
     Active Substance: MISOPROSTOL
     Indication: LABOUR INDUCTION
     Dosage: 100 UG, UNK (2X50?G)
     Route: 064
     Dates: start: 20090825, end: 20090825

REACTIONS (2)
  - Foetal exposure during delivery [Unknown]
  - Jaundice neonatal [Unknown]
